FAERS Safety Report 7723900-3 (Version None)
Quarter: 2011Q3

REPORT INFORMATION
  Report Type: 
  Country: None (occurrence: None)
  Receive Date: 20110901
  Receipt Date: 20110822
  Transmission Date: 20111222
  Serious: Yes (Other)
  Sender: FDA-Public Use
  Company Number: US-ELI_LILLY_AND_COMPANY-US201108002593

PATIENT
  Sex: Female

DRUGS (2)
  1. FORTEO [Suspect]
     Dosage: 20 UG, QD
  2. FORTEO [Suspect]
     Indication: OSTEOPOROSIS
     Dosage: 20 UG, QD
     Dates: start: 20110801

REACTIONS (9)
  - GLOMERULAR FILTRATION RATE ABNORMAL [None]
  - FRACTURE [None]
  - NEPHROLITHIASIS [None]
  - RENAL HAEMORRHAGE [None]
  - GASTROINTESTINAL HAEMORRHAGE [None]
  - CALCULUS URETERIC [None]
  - RENAL DISORDER [None]
  - PAIN [None]
  - BLOOD URINE PRESENT [None]
